FAERS Safety Report 7398556-2 (Version None)
Quarter: 2011Q2

REPORT INFORMATION
  Report Type: 
  Country: None (occurrence: None)
  Receive Date: 20110407
  Receipt Date: 20110328
  Transmission Date: 20111010
  Serious: No
  Sender: FDA-Public Use
  Company Number: US-BIOGENIDEC-2011BI011764

PATIENT
  Age: 52 Year
  Sex: Female

DRUGS (1)
  1. TYSABRI [Suspect]
     Indication: MULTIPLE SCLEROSIS
     Route: 042
     Dates: start: 20100315

REACTIONS (7)
  - NERVOUSNESS [None]
  - MENTAL IMPAIRMENT [None]
  - INSOMNIA [None]
  - DRUG INEFFECTIVE [None]
  - ANXIETY [None]
  - FEAR [None]
  - STRESS [None]
